FAERS Safety Report 5594675-1 (Version None)
Quarter: 2008Q1

REPORT INFORMATION
  Report Type: 
  Country: None (occurrence: None)
  Receive Date: 20080117
  Receipt Date: 20080107
  Transmission Date: 20080703
  Serious: Yes (Other)
  Sender: FDA-Public Use
  Company Number: FR-AMGEN-US236432

PATIENT
  Sex: Female
  Weight: 46 kg

DRUGS (2)
  1. ENBREL [Suspect]
     Indication: ANKYLOSING SPONDYLITIS
     Dosage: LYOPHILIZED/50 MG ONCE WEEKLY
     Route: 058
     Dates: start: 20050103, end: 20070501
  2. ENBREL [Suspect]
     Dosage: PREFILLED SYRINGE/50 MG ONCE WEEKLY
     Route: 058
     Dates: start: 20070501, end: 20070630

REACTIONS (3)
  - ABORTION SPONTANEOUS [None]
  - DRUG EXPOSURE DURING PREGNANCY [None]
  - INJECTION SITE PAIN [None]
